FAERS Safety Report 20910008 (Version 1)
Quarter: 2022Q2

REPORT INFORMATION
  Report Type: Spontaneous
  Country: RO (occurrence: RO)
  Receive Date: 20220603
  Receipt Date: 20220603
  Transmission Date: 20220721
  Serious: Yes (Hospitalization, Other)
  Sender: FDA-Public Use
  Company Number: RO-IPCA LABORATORIES LIMITED-IPC-2022-RO-000639

PATIENT

DRUGS (12)
  1. TRAMADOL HYDROCHLORIDE [Suspect]
     Active Substance: TRAMADOL HYDROCHLORIDE
     Indication: Procedural pain
     Dosage: 100 MILLIGRAM
     Route: 065
  2. METOCLOPRAMIDE [Suspect]
     Active Substance: METOCLOPRAMIDE
     Indication: Product used for unknown indication
     Dosage: UNK
     Route: 065
  3. FENTANYL [Suspect]
     Active Substance: FENTANYL
     Indication: Induction of anaesthesia
     Dosage: 0.2 MICROGRAM/KILOGRAM
     Route: 065
  4. GRANISETRON [Suspect]
     Active Substance: GRANISETRON
     Indication: Prophylaxis of nausea and vomiting
     Dosage: 1 MILLIGRAM
     Route: 065
  5. PITOFENONE [Suspect]
     Active Substance: PITOFENONE
     Indication: Product used for unknown indication
     Dosage: UNK
     Route: 065
  6. LIDOCAINE [Concomitant]
     Active Substance: LIDOCAINE
     Indication: Induction of anaesthesia
     Dosage: 1 MILLIGRAM PER KILOGRAM
     Route: 065
  7. PROPOFOL [Concomitant]
     Active Substance: PROPOFOL
     Indication: Induction of anaesthesia
     Dosage: 2 MILLIGRAM/KILOGRAM
     Route: 065
  8. PROPOFOL [Concomitant]
     Active Substance: PROPOFOL
     Dosage: 50 MILLIGRAM
     Route: 065
  9. PROPOFOL [Concomitant]
     Active Substance: PROPOFOL
     Dosage: 0.5 MILLIGRAM PER KILOGRAM PER HOUR
     Route: 065
  10. SEVOFLURANE [Concomitant]
     Active Substance: SEVOFLURANE
     Indication: Induction of anaesthesia
     Dosage: UNK
     Route: 065
  11. ACETAMINOPHEN [Concomitant]
     Active Substance: ACETAMINOPHEN
     Indication: Analgesic therapy
     Dosage: 1 GRAM
     Route: 065
  12. METAMIZOLE [Concomitant]
     Active Substance: METAMIZOLE
     Indication: Analgesic therapy
     Dosage: 1 GRAM
     Route: 065

REACTIONS (6)
  - Serotonin syndrome [Recovered/Resolved]
  - Disseminated intravascular coagulation [Recovered/Resolved]
  - Endocrine toxicity [Recovered/Resolved]
  - Photosensitivity reaction [Recovered/Resolved]
  - Drug hypersensitivity [Unknown]
  - Abdominal pain [Recovered/Resolved]
